FAERS Safety Report 17471886 (Version 2)
Quarter: 2020Q2

REPORT INFORMATION
  Report Type: Report from Study
  Country: BR (occurrence: BR)
  Receive Date: 20200228
  Receipt Date: 20200414
  Transmission Date: 20200713
  Serious: Yes (Hospitalization, Other)
  Sender: FDA-Public Use
  Company Number: BR-ROCHE-2534316

PATIENT
  Age: 31 Year
  Sex: Female

DRUGS (6)
  1. LORATADINA [Concomitant]
     Active Substance: LORATADINE
     Indication: HISTAMINE LEVEL DECREASED
     Dosage: 10 MG, BID
     Route: 065
     Dates: start: 201901
  2. XOLAIR [Suspect]
     Active Substance: OMALIZUMAB
     Indication: URTICARIA CHRONIC
     Dosage: TWO AMPOULES, QMO
     Route: 058
     Dates: start: 20190801, end: 20191219
  3. XOLAIR [Suspect]
     Active Substance: OMALIZUMAB
     Indication: MAST CELL ACTIVATION SYNDROME
  4. FEXOFENADINE [Concomitant]
     Active Substance: FEXOFENADINE HYDROCHLORIDE
     Indication: HISTAMINE LEVEL DECREASED
     Dosage: 120 MG, BID
     Route: 048
     Dates: start: 201901
  5. RANITIDINE. [Concomitant]
     Active Substance: RANITIDINE
     Indication: HISTAMINE LEVEL DECREASED
     Dosage: 150 MG, BID
     Route: 048
     Dates: start: 201901
  6. MONTELAIR [Concomitant]
     Active Substance: MONTELUKAST SODIUM
     Indication: HISTAMINE LEVEL DECREASED
     Dosage: 10 MG, BID
     Route: 048
     Dates: start: 201901

REACTIONS (21)
  - Diarrhoea [Recovering/Resolving]
  - Pain [Recovering/Resolving]
  - Hyperthermia malignant [Recovering/Resolving]
  - Rhinorrhoea [Recovering/Resolving]
  - Hypersensitivity [Unknown]
  - Pharyngitis [Recovering/Resolving]
  - Dizziness [Recovering/Resolving]
  - Tachycardia [Recovering/Resolving]
  - Influenza [Recovering/Resolving]
  - Head discomfort [Recovering/Resolving]
  - Abdominal pain upper [Recovering/Resolving]
  - Increased upper airway secretion [Recovered/Resolved]
  - Pyrexia [Recovering/Resolving]
  - Nausea [Recovering/Resolving]
  - Oropharyngeal pain [Recovering/Resolving]
  - Body temperature [Recovering/Resolving]
  - Mastocytosis [Unknown]
  - Cough [Recovering/Resolving]
  - Pain in extremity [Recovering/Resolving]
  - Palpitations [Recovering/Resolving]
  - Dehydration [Recovered/Resolved]

NARRATIVE: CASE EVENT DATE: 20190829
